FAERS Safety Report 8147450-8 (Version None)
Quarter: 2012Q1

REPORT INFORMATION
  Report Type: 
  Country: None (occurrence: None)
  Receive Date: 20120218
  Receipt Date: 20110209
  Transmission Date: 20120608
  Serious: No
  Sender: FDA-Public Use
  Company Number: US-ALLERGAN-1101983US

PATIENT
  Age: 46 Year
  Sex: Female

DRUGS (6)
  1. SODIUM CHLORIDE 3% [Suspect]
     Indication: SCLEROTHERAPY
     Dosage: UNK
  2. JUVEDERM XC [Concomitant]
     Indication: SKIN WRINKLING
     Dosage: UNK
  3. BOTOX COSMETIC [Suspect]
     Indication: SKIN WRINKLING
     Dosage: 38 UNITS, SINGLE
     Route: 030
     Dates: start: 20110209, end: 20110209
  4. VITAMIN B-12 [Concomitant]
     Indication: PRODUCT USED FOR UNKNOWN INDICATION
     Dosage: UNK
  5. DYSPORT [Concomitant]
     Indication: SKIN WRINKLING
     Dosage: UNK
  6. RESTALYN [Concomitant]
     Indication: PRODUCT USED FOR UNKNOWN INDICATION
     Dosage: UNK

REACTIONS (8)
  - INJECTION SITE ERYTHEMA [None]
  - DYSPNOEA [None]
  - COUGH [None]
  - INJECTION SITE URTICARIA [None]
  - SKIN TEST POSITIVE [None]
  - DRUG HYPERSENSITIVITY [None]
  - WRONG TECHNIQUE IN DRUG USAGE PROCESS [None]
  - INJECTION SITE PRURITUS [None]
